FAERS Safety Report 8292373-7 (Version None)
Quarter: 2012Q2

REPORT INFORMATION
  Report Type: 
  Country: None (occurrence: None)
  Receive Date: 20120417
  Receipt Date: 20120411
  Transmission Date: 20120825
  Serious: Yes (Other)
  Sender: FDA-Public Use
  Company Number: CHPA2012BR002480

PATIENT
  Age: 47 Year
  Sex: Female

DRUGS (8)
  1. ACETAMINOPHEN, ASPIRIN AND CAFFEINE [Suspect]
     Indication: HEADACHE
     Dosage: 1 DF, PRN, MORE THAN 10 YEARS
     Route: 048
  2. PAMELOR [Suspect]
     Indication: FEELING OF RELAXATION
     Dosage: 75 MG, QD, FROM 6 MONTHS AGO
  3. TRAMADOL HCL [Suspect]
     Indication: PAIN
     Dosage: 1 DF, Q6H, FROM A LONG TIME AGO
  4. ASPIRIN [Suspect]
     Dosage: UNK, UNK
  5. KETOPROFEN [Suspect]
     Indication: PAIN
     Dosage: 1 DF, QW, FROM A LONG TIME AGO
     Route: 030
  6. CANDESARTAN CILEXETIL [Suspect]
     Indication: HYPERTENSION
     Dosage: 16 MG, BID FROM ONE YEAR AGO
     Dates: start: 20110101
  7. AMLODIPINE BESYLATE [Suspect]
     Dosage: 5 MG, UNK
  8. ULTRACET [Suspect]
     Indication: PAIN
     Dosage: 1 DF, Q12H, FROM A LONG TIME AGO

REACTIONS (5)
  - CONDITION AGGRAVATED [None]
  - CEREBROVASCULAR ACCIDENT [None]
  - MIGRAINE [None]
  - DRUG ADMINISTRATION ERROR [None]
  - HYPERTENSION [None]
